FAERS Safety Report 5485844-X (Version None)
Quarter: 2007Q4

REPORT INFORMATION
  Report Type: 
  Country: None (occurrence: None)
  Receive Date: 20071015
  Receipt Date: 20071008
  Transmission Date: 20080405
  Serious: Yes (Hospitalization)
  Sender: FDA-Public Use
  Company Number: DE-SANOFI-SYNTHELABO-A04200701597

PATIENT
  Sex: Female
  Weight: 86 kg

DRUGS (5)
  1. LEVOTHYROXINE SODIUM [Concomitant]
     Indication: HYPOTHYROIDISM
     Route: 048
  2. PANTOPRAZOLE SODIUM [Concomitant]
     Indication: GASTRIC DISORDER
     Route: 048
  3. ELOXATIN [Suspect]
     Indication: RECTAL CANCER
     Dosage: 165 MG
     Route: 041
     Dates: start: 20070910, end: 20070910
  4. MERIMONO [Interacting]
     Indication: MENOPAUSE
     Dosage: UNK
     Route: 048
     Dates: end: 20070901
  5. METROPROLOL [Concomitant]
     Indication: HYPERTENSION
     Route: 048

REACTIONS (2)
  - DRUG INTERACTION [None]
  - HEPATITIS CHOLESTATIC [None]
